FAERS Safety Report 5597133-3 (Version None)
Quarter: 2008Q1

REPORT INFORMATION
  Report Type: 
  Country: None (occurrence: None)
  Receive Date: 20080121
  Receipt Date: 20080117
  Transmission Date: 20080703
  Serious: Yes (Death, Hospitalization)
  Sender: FDA-Public Use
  Company Number: PHBS2008ES00904

PATIENT
  Age: 70 Year
  Sex: Male

DRUGS (3)
  1. ENALAPRIL MALEATE [Concomitant]
     Route: 065
  2. OMEPRAZOLE [Concomitant]
     Route: 065
  3. GLEEVEC [Suspect]
     Indication: EOSINOPHILIA
     Dosage: 100 MG/D
     Route: 048
     Dates: start: 20070101, end: 20071025

REACTIONS (1)
  - CARDIAC FAILURE [None]
